FAERS Safety Report 12178831 (Version 1)
Quarter: 2016Q1

REPORT INFORMATION
  Report Type: Spontaneous
  Country: US (occurrence: US)
  Receive Date: 20160314
  Receipt Date: 20160314
  Transmission Date: 20160526
  Serious: No
  Sender: FDA-Public Use
  Company Number: US-SA-2016SA009021

PATIENT
  Sex: Male

DRUGS (1)
  1. TOUJEO [Suspect]
     Active Substance: INSULIN GLARGINE
     Dosage: ROUTE: ABDOMINAL. DOSE:60 UNIT(S)
     Dates: start: 20151111, end: 20160111

REACTIONS (3)
  - Tetany [Unknown]
  - Muscle spasms [Unknown]
  - Vomiting [Unknown]
